FAERS Safety Report 10339530 (Version 1)
Quarter: 2014Q3

REPORT INFORMATION
  Report Type: Spontaneous
  Country: TR (occurrence: TR)
  Receive Date: 20140724
  Receipt Date: 20140724
  Transmission Date: 20150326
  Serious: Yes (Hospitalization)
  Sender: FDA-Public Use
  Company Number: TR-ASTRAZENECA-2014SE52839

PATIENT
  Age: 59 Year
  Sex: Male

DRUGS (5)
  1. LISINOPRIL. [Suspect]
     Active Substance: LISINOPRIL
     Route: 048
  2. ACETYLSALICYLIC ACID [Concomitant]
     Active Substance: ASPIRIN
  3. HYDROCHLOROTHIAZIDE. [Suspect]
     Active Substance: HYDROCHLOROTHIAZIDE
  4. DILTIAZEM [Concomitant]
     Active Substance: DILTIAZEM
  5. DILTIAZEM [Concomitant]
     Active Substance: DILTIAZEM
     Dosage: INCREASED DOSE

REACTIONS (2)
  - Renal failure acute [Not Recovered/Not Resolved]
  - Fat embolism [Not Recovered/Not Resolved]
